FAERS Safety Report 16946066 (Version 2)
Quarter: 2019Q4

REPORT INFORMATION
  Report Type: Spontaneous
  Country: US (occurrence: US)
  Receive Date: 20191022
  Receipt Date: 20191202
  Transmission Date: 20200122
  Serious: Yes (Other)
  Sender: FDA-Public Use
  Company Number: US-PFIZER INC-2019049417

PATIENT
  Age: 72 Year
  Sex: Male
  Weight: 62.59 kg

DRUGS (2)
  1. IBRANCE [Suspect]
     Active Substance: PALBOCICLIB
     Indication: METASTATIC CARCINOMA OF THE BLADDER
     Dosage: 75 MG, DAILY
     Route: 048
  2. IBRANCE [Suspect]
     Active Substance: PALBOCICLIB
     Dosage: 75 MG, CYCLIC [3 WEEKS DAILY FOR 3 WEEKS AND OFF 1WEEK]
     Route: 048
     Dates: start: 20190201, end: 20190901

REACTIONS (4)
  - Condition aggravated [Not Recovered/Not Resolved]
  - Product use in unapproved indication [Unknown]
  - Off label use [Unknown]
  - Hypoacusis [Not Recovered/Not Resolved]

NARRATIVE: CASE EVENT DATE: 20190201
